FAERS Safety Report 8785936 (Version 2)
Quarter: 2015Q1

REPORT INFORMATION
  Report Type: Report from Study
  Country: US (occurrence: US)
  Receive Date: 20120914
  Receipt Date: 20150323
  Transmission Date: 20150721
  Serious: Yes (Death)
  Sender: FDA-Public Use
  Company Number: US-ROCHE-1126007

PATIENT
  Sex: Female

DRUGS (8)
  1. DECADRON [Concomitant]
     Active Substance: DEXAMETHASONE
     Route: 042
  2. AVASTIN [Suspect]
     Active Substance: BEVACIZUMAB
     Dosage: DATE OF SERVICE ON 18/MAR/2008
     Route: 042
     Dates: start: 20080304
  3. ETOPOSIDE. [Concomitant]
     Active Substance: ETOPOSIDE
     Dosage: 50/25 * 14
     Route: 065
  4. ALOXI [Concomitant]
     Active Substance: PALONOSETRON HYDROCHLORIDE
     Route: 042
  5. AVASTIN [Suspect]
     Active Substance: BEVACIZUMAB
     Route: 042
     Dates: start: 20080417
  6. IRINOTECAN [Concomitant]
     Active Substance: IRINOTECAN
     Route: 042
  7. AVASTIN [Suspect]
     Active Substance: BEVACIZUMAB
     Indication: BRAIN NEOPLASM MALIGNANT
     Route: 042
     Dates: start: 20071203
  8. ATROPINE [Concomitant]
     Active Substance: ATROPINE
     Route: 042

REACTIONS (5)
  - Tenderness [Unknown]
  - Off label use [Unknown]
  - Fatigue [Unknown]
  - Death [Fatal]
  - Erythema [Unknown]
